FAERS Safety Report 16954552 (Version 2)
Quarter: 2019Q4

REPORT INFORMATION
  Report Type: Spontaneous
  Country: US (occurrence: US)
  Receive Date: 20191023
  Receipt Date: 20191115
  Transmission Date: 20200122
  Serious: Yes (Other)
  Sender: FDA-Public Use
  Company Number: US-TEVA-2019-US-1125773

PATIENT
  Age: 77 Year
  Sex: Male

DRUGS (1)
  1. METRONIDAZOLE. [Suspect]
     Active Substance: METRONIDAZOLE
     Indication: TOOTH INFECTION
     Dosage: USED IN MOUTH
     Route: 048

REACTIONS (5)
  - Product solubility abnormal [Unknown]
  - Foreign body in gastrointestinal tract [Unknown]
  - Dysgeusia [Unknown]
  - Oesophageal pain [Recovered/Resolved]
  - Pain [Unknown]

NARRATIVE: CASE EVENT DATE: 20191014
